FAERS Safety Report 8317293-0 (Version None)
Quarter: 2012Q1

REPORT INFORMATION
  Report Type: 
  Country: None (occurrence: None)
  Receive Date: 20120315
  Receipt Date: 20110113
  Transmission Date: 20120608
  Serious: Yes (Other)
  Sender: FDA-Public Use
  Company Number: PHHY2011US03066

PATIENT
  Age: 51 Year
  Sex: Female

DRUGS (5)
  1. ARICEPT [Concomitant]
  2. IMMUNOSUPPRESSANTS (NO INGREDIENTS/SUBSTANCES) [Concomitant]
  3. LIPITOR [Concomitant]
  4. GILENYA [Suspect]
     Indication: MULTIPLE SCLEROSIS
     Dosage: 0.5 MG, QD, ORAL
     Route: 048
     Dates: start: 20101115
  5. ZOMIG [Concomitant]

REACTIONS (4)
  - FATIGUE [None]
  - ASTHENIA [None]
  - LYMPHOCYTE COUNT DECREASED [None]
  - SOMNOLENCE [None]
